FAERS Safety Report 12137617 (Version 1)
Quarter: 2016Q1

REPORT INFORMATION
  Report Type: Spontaneous
  Country: ES (occurrence: ES)
  Receive Date: 20160302
  Receipt Date: 20160302
  Transmission Date: 20160526
  Serious: Yes (Death, Other)
  Sender: FDA-Public Use
  Company Number: ES-TEVA-638593ISR

PATIENT
  Age: 39 Year
  Sex: Male

DRUGS (12)
  1. VINCRISTINE [Suspect]
     Active Substance: VINCRISTINE
     Indication: PLASMABLASTIC LYMPHOMA
     Route: 065
  2. BORTEZOMIB [Suspect]
     Active Substance: BORTEZOMIB
     Indication: PLASMABLASTIC LYMPHOMA
     Dosage: 1.0 MG/M2 WEEKLY
     Route: 058
  3. CYCLOPHOSPHAMIDE. [Suspect]
     Active Substance: CYCLOPHOSPHAMIDE
     Indication: PLASMABLASTIC LYMPHOMA
     Route: 065
  4. DOXORUBICIN [Suspect]
     Active Substance: DOXORUBICIN
     Indication: PLASMABLASTIC LYMPHOMA
     Route: 065
  5. BORTEZOMIB [Suspect]
     Active Substance: BORTEZOMIB
     Indication: PLASMABLASTIC LYMPHOMA
     Dosage: 1.3 MG/M2 ON DAYS 1, 4, 8 AND 11 EVERY 21 DAYS
     Route: 058
  6. METHOTREXATE [Suspect]
     Active Substance: METHOTREXATE
     Indication: PLASMABLASTIC LYMPHOMA
     Route: 037
  7. EMTRICITABINE [Concomitant]
     Active Substance: EMTRICITABINE
     Indication: PLASMABLASTIC LYMPHOMA
     Route: 065
  8. EFAVIRENZ [Concomitant]
     Active Substance: EFAVIRENZ
     Indication: PLASMABLASTIC LYMPHOMA
     Route: 065
  9. CYTARABINE. [Suspect]
     Active Substance: CYTARABINE
     Indication: PLASMABLASTIC LYMPHOMA
     Route: 037
  10. HYDROCORTISONE. [Suspect]
     Active Substance: HYDROCORTISONE
     Indication: PLASMABLASTIC LYMPHOMA
     Route: 037
  11. PREDNISONE. [Suspect]
     Active Substance: PREDNISONE
     Indication: PLASMABLASTIC LYMPHOMA
     Route: 065
  12. TENOFOVIR [Concomitant]
     Active Substance: TENOFOVIR
     Indication: PLASMABLASTIC LYMPHOMA
     Route: 065

REACTIONS (8)
  - Anaemia [Unknown]
  - Thrombocytopenia [Unknown]
  - Sepsis [Unknown]
  - Cytomegalovirus chorioretinitis [Unknown]
  - Progressive multifocal leukoencephalopathy [Fatal]
  - Viral haemorrhagic cystitis [Unknown]
  - Neutropenia [Unknown]
  - Peripheral sensory neuropathy [Recovered/Resolved]
